FAERS Safety Report 7472855-8 (Version None)
Quarter: 2011Q2

REPORT INFORMATION
  Report Type: 
  Country: None (occurrence: None)
  Receive Date: 20110511
  Receipt Date: 20110503
  Transmission Date: 20111010
  Serious: Yes (Hospitalization, Other)
  Sender: FDA-Public Use
  Company Number: US-ASTRAZENECA-2011SE12954

PATIENT
  Age: 59 Year
  Sex: Female

DRUGS (2)
  1. ADVAIR DISKUS 100/50 [Suspect]
     Route: 065
  2. SYMBICORT [Suspect]
     Route: 055

REACTIONS (6)
  - HYPERCAPNIA [None]
  - ABDOMINAL ABSCESS [None]
  - LUNG DISORDER [None]
  - HOSPITALISATION [None]
  - EMPHYSEMA [None]
  - MALIGNANT MELANOMA [None]
